FAERS Safety Report 21876270 (Version 5)
Quarter: 2023Q1

REPORT INFORMATION
  Report Type: Report from Study
  Country: JP (occurrence: JP)
  Receive Date: 20230118
  Receipt Date: 20230222
  Transmission Date: 20230417
  Serious: Yes (Hospitalization)
  Sender: FDA-Public Use
  Company Number: JP-CHUGAI-2023000449AA

PATIENT
  Age: 64 Year
  Sex: Female
  Weight: 47.8 kg

DRUGS (14)
  1. ATEZOLIZUMAB [Suspect]
     Active Substance: ATEZOLIZUMAB
     Indication: Hormone receptor positive HER2 negative breast cancer
     Dosage: 840 MILLIGRAM, DAY1, DAY15
     Route: 041
     Dates: start: 20221213, end: 20221228
  2. BEVACIZUMAB [Suspect]
     Active Substance: BEVACIZUMAB
     Indication: Hormone receptor positive HER2 negative breast cancer
     Dosage: 489 MILLIGRAM, DAY1, DAY15
     Route: 041
     Dates: start: 20221213
  3. PACLITAXEL [Suspect]
     Active Substance: PACLITAXEL
     Indication: Hormone receptor positive HER2 negative breast cancer
     Dosage: 133 MILLIGRAM, DAY1, DAY8, DAY15
     Route: 041
     Dates: start: 20221213
  4. BEVACIZUMAB [Concomitant]
     Active Substance: BEVACIZUMAB
     Indication: Breast cancer
     Dosage: 489 MILLIGRAM, DAY1, DAY15
     Route: 041
     Dates: start: 20221213
  5. PACLITAXEL [Concomitant]
     Active Substance: PACLITAXEL
     Indication: Breast cancer
     Dosage: 133 MILLIGRAM, DAY1, DAY8, DAY15
     Route: 042
     Dates: start: 20221213
  6. OXYCODONE [Concomitant]
     Active Substance: OXYCODONE
     Indication: Cancer pain
     Dosage: 15 MILLIGRAM, BID
     Route: 048
     Dates: start: 20221214
  7. OXYCODONE HYDROCHLORIDE [Concomitant]
     Active Substance: OXYCODONE HYDROCHLORIDE
     Indication: Cancer pain
     Dosage: 5 MILLIGRAM, PRN
     Route: 048
     Dates: start: 20221114
  8. SYMPROIC [Concomitant]
     Active Substance: NALDEMEDINE
     Indication: Constipation
     Dosage: 0.2 MILLIGRAM, QD
     Route: 048
     Dates: start: 20221117
  9. ACETAMINOPHEN [Concomitant]
     Active Substance: ACETAMINOPHEN
     Indication: Cancer pain
     Dosage: 1000 MILLIGRAM, QID
     Route: 048
     Dates: start: 20221117, end: 20230110
  10. LOXOPROFEN [Concomitant]
     Active Substance: LOXOPROFEN
     Indication: Cancer pain
     Dosage: 60 MILLIGRAM, TID
     Route: 048
     Dates: start: 20221118
  11. MAGNESIUM OXIDE [Concomitant]
     Active Substance: MAGNESIUM OXIDE
     Indication: Constipation
     Dosage: 500 MILLIGRAM, PRN
     Route: 048
     Dates: start: 20221101
  12. LOXOPROFEN SODIUM [Concomitant]
     Active Substance: LOXOPROFEN SODIUM
     Indication: Cancer pain
     Dosage: 100 MILLIGRAM, PRN
     Route: 061
     Dates: start: 20221202
  13. REBAMIPIDE [Concomitant]
     Active Substance: REBAMIPIDE
     Indication: Gastritis prophylaxis
     Dosage: 100 MILLIGRAM, TID
     Route: 048
     Dates: start: 20221228
  14. SODIUM BICARBONATE;SODIUM GUALENATE HYDRATE [Concomitant]
     Indication: Prophylaxis
     Dosage: UNK
     Route: 002
     Dates: start: 20221229

REACTIONS (1)
  - Drug-induced liver injury [Recovered/Resolved]

NARRATIVE: CASE EVENT DATE: 20230110
